FAERS Safety Report 19223163 (Version 1)
Quarter: 2021Q2

REPORT INFORMATION
  Report Type: Spontaneous
  Country: US (occurrence: US)
  Receive Date: 20210505
  Receipt Date: 20210505
  Transmission Date: 20210717
  Serious: No
  Sender: FDA-Public Use
  Company Number: US-ROCHE-2715745

PATIENT
  Sex: Female

DRUGS (1)
  1. ESBRIET [Suspect]
     Active Substance: PIRFENIDONE
     Indication: IDIOPATHIC PULMONARY FIBROSIS
     Dosage: TAKE 1 TABLETS, THEN 2 TABLETS, AND THEN 3 TABLETS 3 TIMES DAILY WITH MEALS?1 WEEK
     Route: 048
     Dates: start: 20201030

REACTIONS (2)
  - Nausea [Unknown]
  - Dizziness [Unknown]
